FAERS Safety Report 9476084 (Version 1)
Quarter: 2013Q3

REPORT INFORMATION
  Report Type: Spontaneous
  Country: US (occurrence: None)
  Receive Date: 20130822
  Receipt Date: 20130822
  Transmission Date: 20140515
  Serious: Yes (Other)
  Sender: FDA-Public Use
  Company Number: None

PATIENT
  Age: 46 Year
  Sex: Female

DRUGS (1)
  1. GAMUNEX [Suspect]
     Dosage: GAMUNEX-C Q 4 WEEKS PIV
     Route: 042
     Dates: start: 20120703, end: 20130814

REACTIONS (3)
  - Rash [None]
  - Infusion related reaction [None]
  - Pruritus [None]
